FAERS Safety Report 25527764 (Version 3)
Quarter: 2025Q3

REPORT INFORMATION
  Report Type: Report from Study
  Country: BR (occurrence: BR)
  Receive Date: 20250708
  Receipt Date: 20250825
  Transmission Date: 20251020
  Serious: Yes (Hospitalization, Other)
  Sender: NOVO NORDISK
  Company Number: BR-NOVOPROD-1468806

PATIENT
  Age: 2 Year
  Sex: Male
  Weight: 14.6 kg

DRUGS (3)
  1. LANTUS [Concomitant]
     Active Substance: INSULIN GLARGINE
     Indication: Type 1 diabetes mellitus
  2. FIASP [Suspect]
     Active Substance: INSULIN ASPART
     Indication: Type 1 diabetes mellitus
     Dates: start: 202405
  3. FIASP [Suspect]
     Active Substance: INSULIN ASPART
     Dates: start: 20250620

REACTIONS (5)
  - Diabetes mellitus inadequate control [Unknown]
  - Incorrect dose administered by device [Recovered/Resolved]
  - Device delivery system issue [Recovered/Resolved]
  - Hyperglycaemia [Recovered/Resolved]
  - Liquid product physical issue [Recovered/Resolved]

NARRATIVE: CASE EVENT DATE: 20250624
